FAERS Safety Report 20814519 (Version 2)
Quarter: 2022Q3

REPORT INFORMATION
  Report Type: Spontaneous
  Country: IN (occurrence: IN)
  Receive Date: 20220511
  Receipt Date: 20220817
  Transmission Date: 20221026
  Serious: Yes (Other)
  Sender: FDA-Public Use
  Company Number: IN-PFIZER INC-2021601873

PATIENT
  Age: 68 Year
  Sex: Female

DRUGS (3)
  1. PALBOCICLIB [Suspect]
     Active Substance: PALBOCICLIB
     Indication: Breast cancer metastatic
     Dosage: 125 MG, ONCE A DAY
     Route: 048
     Dates: start: 20210315, end: 202205
  2. LETROZOLE [Concomitant]
     Active Substance: LETROZOLE
     Dosage: UNK
     Dates: start: 202103
  3. ZOLEDRONIC ACID [Concomitant]
     Active Substance: ZOLEDRONIC ACID
     Dosage: UNK
     Dates: start: 202103

REACTIONS (10)
  - Hypotension [Unknown]
  - Sleep disorder [Unknown]
  - Temperature intolerance [Unknown]
  - Hyperhidrosis [Unknown]
  - Diarrhoea [Unknown]
  - Hypoaesthesia [Unknown]
  - Alopecia [Unknown]
  - Insomnia [Unknown]
  - Hyperhidrosis [Unknown]
  - Neoplasm progression [Unknown]
